FAERS Safety Report 26156904 (Version 1)
Quarter: 2025Q4

REPORT INFORMATION
  Report Type: Spontaneous
  Country: US (occurrence: US)
  Receive Date: 20251215
  Receipt Date: 20251215
  Transmission Date: 20260117
  Serious: No
  Sender: ALCON
  Company Number: US-ALCON LABORATORIES-ALC2025US006892

PATIENT
  Age: 84 Year
  Sex: Female

DRUGS (5)
  1. ACOLTREMON [Suspect]
     Active Substance: ACOLTREMON
     Indication: Product used for unknown indication
     Dosage: INSTILL 1 DROP INTO EACH EYE TWICE A DAY
     Route: 047
     Dates: start: 20251115, end: 20251117
  2. AZITHROMYCIN [Concomitant]
     Active Substance: AZITHROMYCIN
     Indication: Product used for unknown indication
     Route: 065
  3. VITAMINS [Concomitant]
     Active Substance: VITAMINS
     Indication: Product used for unknown indication
     Route: 065
  4. THERATEARS [Concomitant]
     Active Substance: CARBOXYMETHYLCELLULOSE SODIUM
     Indication: Product used for unknown indication
     Route: 065
  5. ZIOPTAN [Concomitant]
     Active Substance: TAFLUPROST
     Indication: Product used for unknown indication
     Route: 065

REACTIONS (4)
  - Eye pruritus [Recovering/Resolving]
  - Vision blurred [Unknown]
  - Ocular discomfort [Recovering/Resolving]
  - Eye irritation [Recovering/Resolving]
